FAERS Safety Report 5457969-6 (Version None)
Quarter: 2007Q3

REPORT INFORMATION
  Report Type: 
  Country: None (occurrence: None)
  Receive Date: 20070917
  Receipt Date: 20070904
  Transmission Date: 20080115
  Serious: Yes (Other)
  Sender: FDA-Public Use
  Company Number: 2007BI015417

PATIENT
  Age: 53 Year
  Sex: Female

DRUGS (5)
  1. NATALIZUMAB [Suspect]
     Indication: MULTIPLE SCLEROSIS
     Dosage: 300 MG; QM; IV
     Route: 042
     Dates: start: 20070620, end: 20070720
  2. VALPROIC ACID [Concomitant]
  3. ATIVAN [Concomitant]
  4. LEVOTHYROXINE SODIUM [Concomitant]
  5. CITALOPRAM HYDROBROMIDE [Concomitant]

REACTIONS (10)
  - BLOOD PRESSURE DECREASED [None]
  - BRADYCARDIA [None]
  - DYSPNOEA [None]
  - FLUSHING [None]
  - HYPERSENSITIVITY [None]
  - HYPOTENSION [None]
  - PRURITUS GENERALISED [None]
  - RASH [None]
  - SYNCOPE VASOVAGAL [None]
  - UNRESPONSIVE TO STIMULI [None]
